FAERS Safety Report 25327870 (Version 1)
Quarter: 2025Q2

REPORT INFORMATION
  Report Type: Spontaneous
  Country: US (occurrence: US)
  Receive Date: 20250518
  Receipt Date: 20250518
  Transmission Date: 20250716
  Serious: No
  Sender: SANOFI AVENTIS
  Company Number: US-SA-2025SA139280

PATIENT
  Age: 58 Year
  Sex: Male
  Weight: 100.91 kg

DRUGS (19)
  1. DUPIXENT [Suspect]
     Active Substance: DUPILUMAB
     Indication: Dermatitis atopic
     Dosage: 300 MG, QOW
     Route: 058
     Dates: start: 2025
  2. PREDNISONE [Concomitant]
     Active Substance: PREDNISONE
  3. FAMOTIDINE [Concomitant]
     Active Substance: FAMOTIDINE
  4. PANTOPRAZOLE SODIUM [Concomitant]
     Active Substance: PANTOPRAZOLE SODIUM
  5. FARXIGA [Concomitant]
     Active Substance: DAPAGLIFLOZIN PROPANEDIOL
  6. METFORMIN HYDROCHLORIDE [Concomitant]
     Active Substance: METFORMIN HYDROCHLORIDE
  7. TAMSULOSIN HYDROCHLORIDE [Concomitant]
     Active Substance: TAMSULOSIN HYDROCHLORIDE
  8. MOUNJARO [Concomitant]
     Active Substance: TIRZEPATIDE
  9. TOUJEO [Concomitant]
     Active Substance: INSULIN GLARGINE
  10. CLOBETASOL PROPIONATE [Concomitant]
     Active Substance: CLOBETASOL PROPIONATE
  11. HUMALOG KWIKPEN [Concomitant]
     Active Substance: INSULIN LISPRO
  12. METOPROLOL SUCCINATE [Concomitant]
     Active Substance: METOPROLOL SUCCINATE
  13. VALSARTAN [Concomitant]
     Active Substance: VALSARTAN
  14. ATORVASTATIN CALCIUM [Concomitant]
     Active Substance: ATORVASTATIN CALCIUM
  15. GABAPENTIN [Concomitant]
     Active Substance: GABAPENTIN
  16. DEXAMETHASONE [Concomitant]
     Active Substance: DEXAMETHASONE
  17. ESCITALOPRAM OXALATE [Concomitant]
     Active Substance: ESCITALOPRAM OXALATE
  18. TACROLIMUS [Concomitant]
     Active Substance: TACROLIMUS
  19. TRIAMCINOLONE ACETONIDE [Concomitant]
     Active Substance: TRIAMCINOLONE ACETONIDE

REACTIONS (7)
  - Pruritus [Unknown]
  - Skin weeping [Unknown]
  - Skin haemorrhage [Unknown]
  - Dry skin [Unknown]
  - Skin fissures [Unknown]
  - Skin exfoliation [Unknown]
  - Sleep disorder due to a general medical condition [Unknown]

NARRATIVE: CASE EVENT DATE: 20250501
